FAERS Safety Report 5116263-3 (Version None)
Quarter: 2006Q3

REPORT INFORMATION
  Report Type: 
  Country: None (occurrence: None)
  Receive Date: 20060927
  Receipt Date: 20060922
  Transmission Date: 20061208
  Serious: Yes (Other)
  Sender: FDA-Public Use
  Company Number: 463656

PATIENT
  Age: 40 Year
  Sex: Female

DRUGS (2)
  1. CARVEDILOL [Suspect]
     Route: 048
     Dates: end: 20060615
  2. TENORMIN [Concomitant]

REACTIONS (1)
  - LEUKOCYTOCLASTIC VASCULITIS [None]
